FAERS Safety Report 17305954 (Version 8)
Quarter: 2020Q4

REPORT INFORMATION
  Report Type: Report from Study
  Country: None (occurrence: JP)
  Receive Date: 20200123
  Receipt Date: 20201214
  Transmission Date: 20210113
  Serious: Yes (Death, Other)
  Sender: FDA-Public Use
  Company Number: JP-ABBVIE-20K-087-3244335-00

PATIENT
  Age: 66 Year
  Sex: Male
  Weight: 43 kg

DRUGS (9)
  1. VENCLEXTA [Suspect]
     Active Substance: VENETOCLAX
     Indication: CHRONIC LYMPHOCYTIC LEUKAEMIA RECURRENT
     Dosage: DOSE INCREASED
     Route: 048
     Dates: start: 20191205, end: 201912
  2. SULFAMETHOXAZOLE AND TRIMETHOPRIM [Concomitant]
     Active Substance: SULFAMETHOXAZOLE\TRIMETHOPRIM
     Indication: INFECTION PROPHYLAXIS
     Dates: start: 20191206
  3. FEBUXOSTAT. [Concomitant]
     Active Substance: FEBUXOSTAT
     Indication: PROPHYLAXIS
     Dates: start: 20191125
  4. VENCLEXTA [Suspect]
     Active Substance: VENETOCLAX
     Dosage: DOSE INCREASED
     Route: 048
     Dates: start: 20191219, end: 201912
  5. VENCLEXTA [Suspect]
     Active Substance: VENETOCLAX
     Dosage: DOSE DECREASED
     Route: 048
     Dates: start: 20191226, end: 20191230
  6. VENCLEXTA [Suspect]
     Active Substance: VENETOCLAX
     Indication: CHRONIC LYMPHOCYTIC LEUKAEMIA REFRACTORY
     Route: 048
     Dates: start: 20191128
  7. ITRACONAZOLE. [Concomitant]
     Active Substance: ITRACONAZOLE
     Indication: INFECTION PROPHYLAXIS
     Dates: start: 20191225
  8. VENCLEXTA [Suspect]
     Active Substance: VENETOCLAX
     Dosage: DOSE DECREASED
     Route: 048
     Dates: start: 20191212, end: 20191230
  9. ACICLOVIR [Concomitant]
     Active Substance: ACYCLOVIR
     Indication: INFECTION PROPHYLAXIS
     Dates: start: 20150106

REACTIONS (6)
  - Sepsis [Recovering/Resolving]
  - Chronic lymphocytic leukaemia [Fatal]
  - Bacillus infection [Recovered/Resolved]
  - Febrile neutropenia [Recovering/Resolving]
  - Contraindicated product administered [Unknown]
  - Brain abscess [Recovered/Resolved]

NARRATIVE: CASE EVENT DATE: 201912
